FAERS Safety Report 4994739-7 (Version None)
Quarter: 2006Q2

REPORT INFORMATION
  Report Type: 
  Country: None (occurrence: None)
  Receive Date: 20060505
  Receipt Date: 20060425
  Transmission Date: 20061013
  Serious: Yes (Death, Hospitalization)
  Sender: FDA-Public Use
  Company Number: CA-ABBOTT-06P-028-0331909-00

PATIENT
  Sex: Male

DRUGS (1)
  1. HUMIRA [Suspect]
     Indication: RHEUMATOID ARTHRITIS
     Route: 058
     Dates: start: 20060127, end: 20060401

REACTIONS (4)
  - BACK PAIN [None]
  - COUGH [None]
  - INCREASED UPPER AIRWAY SECRETION [None]
  - STAPHYLOCOCCAL SEPSIS [None]
